FAERS Safety Report 10735744 (Version 2)
Quarter: 2015Q1

REPORT INFORMATION
  Report Type: Report from Study
  Country: BE (occurrence: BE)
  Receive Date: 20150126
  Receipt Date: 20150214
  Transmission Date: 20150721
  Serious: Yes (Death, Other)
  Sender: FDA-Public Use
  Company Number: BE-BIOGENIDEC-2015BI005007

PATIENT
  Age: 61 Year
  Sex: Male

DRUGS (1)
  1. AVONEX [Suspect]
     Active Substance: INTERFERON BETA-1A
     Indication: MULTIPLE SCLEROSIS
     Route: 030
     Dates: start: 20070531, end: 20100121

REACTIONS (2)
  - Death [Fatal]
  - Brain neoplasm [Recovered/Resolved]

NARRATIVE: CASE EVENT DATE: 20100406
